FAERS Safety Report 23100591 (Version 1)
Quarter: 2023Q4

REPORT INFORMATION
  Report Type: Spontaneous
  Country: AT (occurrence: AT)
  Receive Date: 20231024
  Receipt Date: 20231024
  Transmission Date: 20240110
  Serious: Yes (Other)
  Sender: FDA-Public Use
  Company Number: AT-PFIZER INC-PV202300173074

PATIENT
  Age: 62 Year
  Sex: Female

DRUGS (2)
  1. LORLATINIB [Suspect]
     Active Substance: LORLATINIB
     Dosage: 100 MG
     Dates: start: 20230413
  2. DENOSUMAB [Concomitant]
     Active Substance: DENOSUMAB
     Dosage: UNK
     Dates: start: 20230413

REACTIONS (5)
  - Polyneuropathy [Unknown]
  - Carpal tunnel syndrome [Unknown]
  - Paraesthesia [Unknown]
  - Oedema peripheral [Unknown]
  - Radicular pain [Unknown]

NARRATIVE: CASE EVENT DATE: 20230101
